FAERS Safety Report 9237842 (Version 5)
Quarter: 2013Q3

REPORT INFORMATION
  Report Type: Spontaneous
  Country: PT (occurrence: PT)
  Receive Date: 20130418
  Receipt Date: 20130719
  Transmission Date: 20140515
  Serious: Yes (Death, Hospitalization)
  Sender: FDA-Public Use
  Company Number: PT-SHIRE-ALL1-2013-02318

PATIENT
  Age: 33 Year
  Sex: Male
  Weight: 48 kg

DRUGS (3)
  1. ELAPRASE [Suspect]
     Indication: MUCOPOLYSACCHARIDOSIS II
     Dosage: 0.5 MG/KG, 1X/WEEK
     Route: 041
     Dates: start: 20130104, end: 20130328
  2. ELAPRASE [Suspect]
     Dosage: UNK, UNKNOWN
     Route: 041
     Dates: start: 20130412
  3. SALMETEROL [Concomitant]
     Indication: PRODUCT USED FOR UNKNOWN INDICATION
     Dosage: UNK, UNKNOWN
     Route: 055

REACTIONS (5)
  - Acute promyelocytic leukaemia [Fatal]
  - Drug withdrawal syndrome [Fatal]
  - Respiratory failure [Fatal]
  - Pancytopenia [Not Recovered/Not Resolved]
  - Cardiac failure [Not Recovered/Not Resolved]
